FAERS Safety Report 20987036 (Version 1)
Quarter: 2022Q2

REPORT INFORMATION
  Report Type: Spontaneous
  Country: DE (occurrence: DE)
  Receive Date: 20220621
  Receipt Date: 20220621
  Transmission Date: 20220721
  Serious: Yes (Other)
  Sender: FDA-Public Use
  Company Number: DE-RECORDATI-2022002654

PATIENT

DRUGS (5)
  1. DACTINOMYCIN [Suspect]
     Active Substance: DACTINOMYCIN
     Indication: Soft tissue sarcoma
  2. VINCRISTINE [Suspect]
     Active Substance: VINCRISTINE
     Indication: Soft tissue sarcoma
  3. ADRIAMYCIN [Suspect]
     Active Substance: DOXORUBICIN HYDROCHLORIDE
     Indication: Soft tissue sarcoma
  4. IFOSFAMIDE [Suspect]
     Active Substance: IFOSFAMIDE
     Indication: Soft tissue sarcoma
  5. ALECTINIB [Suspect]
     Active Substance: ALECTINIB
     Indication: Soft tissue sarcoma

REACTIONS (1)
  - Neoplasm progression [Unknown]
